FAERS Safety Report 6305932-5 (Version None)
Quarter: 2009Q3

REPORT INFORMATION
  Report Type: 
  Country: None (occurrence: None)
  Receive Date: 20090812
  Receipt Date: 20090804
  Transmission Date: 20100115
  Serious: Yes (Other)
  Sender: FDA-Public Use
  Company Number: US-PFIZER INC-2009251337

PATIENT
  Sex: Female

DRUGS (1)
  1. VIRACEPT [Suspect]
     Indication: HIV INFECTION
     Dosage: UNK

REACTIONS (2)
  - DYSPHAGIA [None]
  - SMALL CELL LUNG CANCER STAGE UNSPECIFIED [None]
